FAERS Safety Report 5558041-7 (Version None)
Quarter: 2007Q4

REPORT INFORMATION
  Report Type: 
  Country: None (occurrence: None)
  Receive Date: 20071214
  Receipt Date: 20071127
  Transmission Date: 20080405
  Serious: Yes (Other)
  Sender: FDA-Public Use
  Company Number: CA-RANBAXY-2007US-11865

PATIENT

DRUGS (1)
  1. MINOCYCLINE HYDROCHLORIDE [Suspect]
     Indication: DRUG USE FOR UNKNOWN INDICATION
     Dosage: UNK

REACTIONS (9)
  - ARTHRALGIA [None]
  - ARTHRITIS [None]
  - EYELID OEDEMA [None]
  - LIP SWELLING [None]
  - LYMPHADENOPATHY [None]
  - PYREXIA [None]
  - SERUM SICKNESS [None]
  - SWELLING FACE [None]
  - URTICARIA [None]
